FAERS Safety Report 5167963-0 (Version None)
Quarter: 2006Q4

REPORT INFORMATION
  Report Type: 
  Country: None (occurrence: None)
  Receive Date: 20061208
  Receipt Date: 20051122
  Transmission Date: 20070319
  Serious: No
  Sender: FDA-Public Use
  Company Number: US-GLAXOSMITHKLINE-A0583514A

PATIENT
  Age: 44 Year
  Sex: Female

DRUGS (2)
  1. AVANDAMET [Suspect]
     Route: 048
  2. NO CONCURRENT MEDICATION [Concomitant]

REACTIONS (4)
  - ASTHENIA [None]
  - BLOOD GLUCOSE INCREASED [None]
  - HEADACHE [None]
  - NAUSEA [None]
